FAERS Safety Report 5620952-1 (Version None)
Quarter: 2008Q1

REPORT INFORMATION
  Report Type: 
  Country: None (occurrence: None)
  Receive Date: 20080208
  Receipt Date: 20080129
  Transmission Date: 20080703
  Serious: Yes (Other)
  Sender: FDA-Public Use
  Company Number: US-PFIZER INC-2008008721

PATIENT
  Sex: Female
  Weight: 55.3 kg

DRUGS (12)
  1. CHANTIX [Suspect]
     Indication: SMOKING CESSATION THERAPY
  2. VANQUISH [Concomitant]
     Indication: HEADACHE
     Dosage: TEXT:2-3-FREQ:PER DAY
  3. VYTORIN [Concomitant]
  4. TOPROL-XL [Concomitant]
  5. ASPIRIN [Concomitant]
  6. VITAMIN CAP [Concomitant]
  7. ASCORBIC ACID [Concomitant]
  8. VITAMIN B-12 [Concomitant]
  9. COENZYME Q10 [Concomitant]
  10. CALCIUM WITH VITAMIN D [Concomitant]
  11. VITAMIN E [Concomitant]
  12. OMEGA 3 [Concomitant]

REACTIONS (14)
  - AGITATION [None]
  - CONSTIPATION [None]
  - DISTURBANCE IN ATTENTION [None]
  - DRUG DOSE OMISSION [None]
  - EYE PAIN [None]
  - HALLUCINATION, TACTILE [None]
  - HEADACHE [None]
  - IRRITABILITY [None]
  - MALAISE [None]
  - MUSCULOSKELETAL STIFFNESS [None]
  - NERVOUSNESS [None]
  - PAIN [None]
  - TREMOR [None]
  - WRONG TECHNIQUE IN DRUG USAGE PROCESS [None]
